FAERS Safety Report 16376794 (Version 1)
Quarter: 2019Q2

REPORT INFORMATION
  Report Type: Spontaneous
  Country: JP (occurrence: JP)
  Receive Date: 20190531
  Receipt Date: 20190531
  Transmission Date: 20190711
  Serious: Yes (Hospitalization, Other)
  Sender: FDA-Public Use
  Company Number: JP-BRACCO-2019JP02676

PATIENT
  Sex: Male

DRUGS (2)
  1. IOPAMIRON [Suspect]
     Active Substance: IOPAMIDOL
     Indication: DIAGNOSTIC PROCEDURE
     Dosage: 100 DF, ONCE
     Route: 040
     Dates: start: 20190522, end: 20190522
  2. BIGUANIDE [Concomitant]
     Active Substance: UNSPECIFIED INGREDIENT
     Dosage: UNK
     Dates: end: 20190522

REACTIONS (3)
  - Feeling abnormal [Recovered/Resolved]
  - Lactic acidosis [Recovered/Resolved]
  - Depressed level of consciousness [Recovered/Resolved]

NARRATIVE: CASE EVENT DATE: 20190522
